FAERS Safety Report 4941752-1 (Version None)
Quarter: 2006Q1

REPORT INFORMATION
  Report Type: 
  Country: None (occurrence: None)
  Receive Date: 20060308
  Receipt Date: 20060301
  Transmission Date: 20060701
  Serious: Yes (Death)
  Sender: FDA-Public Use
  Company Number: 2006004919

PATIENT
  Age: 97 Year
  Sex: Female
  Weight: 54.4316 kg

DRUGS (8)
  1. DETROL LA [Suspect]
     Indication: BLADDER DISORDER
     Dosage: 2 MG (2 MG, 1 IN 1 D)
     Dates: start: 20040219
  2. ZANTAC [Suspect]
     Indication: GASTROOESOPHAGEAL REFLUX DISEASE
     Dates: start: 20051001
  3. LASIX [Concomitant]
  4. REFRESH (POLYVIDONE, POLYVINYL ALCOHOL) [Concomitant]
  5. XALATAN [Concomitant]
  6. TRAZODONE HCL [Concomitant]
  7. TOPROL-XL [Concomitant]
  8. XANAX [Concomitant]

REACTIONS (7)
  - BILIARY CANCER METASTATIC [None]
  - CONSTIPATION [None]
  - DEPRESSION [None]
  - GASTROOESOPHAGEAL REFLUX DISEASE [None]
  - OSTEOARTHRITIS [None]
  - OSTEOPENIA [None]
  - VOMITING [None]
